FAERS Safety Report 19498902 (Version 1)
Quarter: 2021Q3

REPORT INFORMATION
  Report Type: Report from Study
  Country: GB (occurrence: GB)
  Receive Date: 20210707
  Receipt Date: 20210707
  Transmission Date: 20211014
  Serious: Yes (Other)
  Sender: FDA-Public Use
  Company Number: GB-JNJFOC-20210655582

PATIENT
  Age: 2 Decade
  Sex: Female

DRUGS (2)
  1. STELARA [Suspect]
     Active Substance: USTEKINUMAB
     Indication: COLITIS ULCERATIVE
     Route: 058
     Dates: start: 20201229
  2. STELARA [Suspect]
     Active Substance: USTEKINUMAB
     Dosage: 8 WEEKS AFTER INDUCTION
     Route: 058
     Dates: start: 20210223

REACTIONS (3)
  - Off label use [Unknown]
  - Kidney infection [Unknown]
  - Product use issue [Unknown]

NARRATIVE: CASE EVENT DATE: 20201229
